FAERS Safety Report 5504089-8 (Version None)
Quarter: 2007Q4

REPORT INFORMATION
  Report Type: 
  Country: None (occurrence: None)
  Receive Date: 20071101
  Receipt Date: 20071023
  Transmission Date: 20080405
  Serious: Yes (Disabling)
  Sender: FDA-Public Use
  Company Number: AU-PURDUE-USA_2007_0029868

PATIENT
  Age: 68 Year
  Sex: Female

DRUGS (1)
  1. OXYCONTIN [Suspect]
     Indication: PAIN
     Dosage: 10 MG, DAILY
     Route: 048
     Dates: start: 20070814, end: 20070814

REACTIONS (2)
  - CONSCIOUSNESS FLUCTUATING [None]
  - VOMITING [None]
